FAERS Safety Report 5223319-3 (Version None)
Quarter: 2007Q1

REPORT INFORMATION
  Report Type: 
  Country: None (occurrence: None)
  Receive Date: 20070125
  Receipt Date: 20070110
  Transmission Date: 20070707
  Serious: Yes (Congenital Anomaly)
  Sender: FDA-Public Use
  Company Number: 15504

PATIENT
  Age: 30 Year
  Sex: Male

DRUGS (1)
  1. METHOTREXATE [Suspect]
     Dates: start: 20050425

REACTIONS (3)
  - BIRTH MARK [None]
  - DRUG EXPOSURE DURING PREGNANCY [None]
  - TESTICULAR DISORDER [None]
